FAERS Safety Report 5058482-0 (Version None)
Quarter: 2006Q3

REPORT INFORMATION
  Report Type: 
  Country: None (occurrence: None)
  Receive Date: 20060719
  Receipt Date: 20060711
  Transmission Date: 20061208
  Serious: Yes (Hospitalization)
  Sender: FDA-Public Use
  Company Number: E2090-00035-SPO-GB

PATIENT
  Age: 40 Year
  Sex: Female

DRUGS (4)
  1. ZONEGRAN [Suspect]
     Indication: EPILEPSY
     Dosage: SEE IMAGE
     Route: 048
  2. PHENYTOIN [Concomitant]
  3. KEPPRA [Concomitant]
  4. TOPIRAMATE [Concomitant]

REACTIONS (4)
  - AGGRESSION [None]
  - COMA [None]
  - PSYCHOTIC DISORDER [None]
  - TREATMENT NONCOMPLIANCE [None]
